FAERS Safety Report 16393800 (Version 1)
Quarter: 2019Q2

REPORT INFORMATION
  Report Type: Spontaneous
  Country: US (occurrence: US)
  Receive Date: 20190605
  Receipt Date: 20190605
  Transmission Date: 20190711
  Serious: No
  Sender: FDA-Public Use
  Company Number: US-PFIZER INC-2019120079

PATIENT
  Age: 56 Year
  Sex: Female

DRUGS (5)
  1. TAXOTERE [Suspect]
     Active Substance: DOCETAXEL
     Indication: TRIPLE NEGATIVE BREAST CANCER
     Dosage: 130 MG, CYCLIC (06 CYCLES, EVERY THREE WEEKS)
     Dates: start: 20120321, end: 20120703
  2. ADRIAMYCIN [Concomitant]
     Active Substance: DOXORUBICIN HYDROCHLORIDE
     Indication: CHEMOTHERAPY
     Dosage: UNK
  3. DOCETAXEL. [Suspect]
     Active Substance: DOCETAXEL
     Indication: TRIPLE NEGATIVE BREAST CANCER
     Dosage: 130 MG, CYCLIC (06 CYCLES, EVERY THREE WEEKS)
     Dates: start: 20120321, end: 20120703
  4. NEOSAR [Concomitant]
     Active Substance: CYCLOPHOSPHAMIDE
     Indication: CHEMOTHERAPY
     Dosage: UNK
  5. DOXIL [Concomitant]
     Active Substance: DOXORUBICIN HYDROCHLORIDE
     Indication: CHEMOTHERAPY
     Dosage: UNK

REACTIONS (4)
  - Hair texture abnormal [Not Recovered/Not Resolved]
  - Hair disorder [Not Recovered/Not Resolved]
  - Hair colour changes [Not Recovered/Not Resolved]
  - Alopecia [Not Recovered/Not Resolved]

NARRATIVE: CASE EVENT DATE: 201301
